FAERS Safety Report 16263999 (Version 1)
Quarter: 2019Q2

REPORT INFORMATION
  Report Type: Spontaneous
  Country: DE (occurrence: DE)
  Receive Date: 20190502
  Receipt Date: 20190502
  Transmission Date: 20190711
  Serious: Yes (Hospitalization, Other)
  Sender: FDA-Public Use
  Company Number: DE-PROVELL PHARMACEUTICALS-2066522

PATIENT
  Age: 60 Year
  Sex: Female
  Weight: 94 kg

DRUGS (11)
  1. BROMAZEPAM [Concomitant]
     Active Substance: BROMAZEPAM
     Dates: start: 201808
  2. METOPROLOLSUCCINAT DURA [Suspect]
     Active Substance: METOPROLOL SUCCINATE
     Dates: start: 2019
  3. ZOLPIDEM AL [Concomitant]
     Active Substance: ZOLPIDEM TARTRATE
     Dates: start: 201808
  4. METOPROLOLSUCCINAT DURA [Suspect]
     Active Substance: METOPROLOL SUCCINATE
     Dates: start: 201808
  5. AMLODIPINE BESILATE [Suspect]
     Active Substance: AMLODIPINE BESYLATE
     Dates: start: 2019
  6. EUTHYROX [Suspect]
     Active Substance: LEVOTHYROXINE SODIUM
     Dates: start: 2011
  7. SIMVASTATIN. [Concomitant]
     Active Substance: SIMVASTATIN
     Dates: start: 201808
  8. AMLODIPINE BESILATE [Suspect]
     Active Substance: AMLODIPINE BESYLATE
     Dates: start: 201808
  9. CANDESARTAN ZENTIVA [Suspect]
     Active Substance: CANDESARTAN CILEXETIL
     Dates: start: 2019
  10. EUTHYROX [Suspect]
     Active Substance: LEVOTHYROXINE SODIUM
     Indication: AUTOIMMUNE THYROIDITIS
     Dates: start: 1983
  11. CANDESARTAN ZENTIVA [Suspect]
     Active Substance: CANDESARTAN CILEXETIL
     Dates: start: 201808

REACTIONS (8)
  - Arrhythmia [Recovering/Resolving]
  - Feeling hot [None]
  - Blood pressure increased [None]
  - Disturbance in attention [None]
  - Visual impairment [Recovering/Resolving]
  - Disorientation [None]
  - Blepharospasm [Recovering/Resolving]
  - Sleep apnoea syndrome [None]

NARRATIVE: CASE EVENT DATE: 201808
